FAERS Safety Report 8601026 (Version 4)
Quarter: 2014Q3

REPORT INFORMATION
  Report Type: Report from Study
  Country: US (occurrence: US)
  Receive Date: 20120606
  Receipt Date: 20140707
  Transmission Date: 20150326
  Serious: Yes (Death, Other)
  Sender: FDA-Public Use
  Company Number: US-ROCHE-1072007

PATIENT

DRUGS (4)
  1. ERLOTINIB [Suspect]
     Active Substance: ERLOTINIB
     Indication: GLIOBLASTOMA
     Dosage: 150-200MG/DAY ON A CONTINUOUS BASIS 7 DAYS PER WEEK OR 500-600MG/DAY FOR PATIENTS ON ENZYME-INDUCING
     Route: 065
  2. BEVACIZUMAB [Suspect]
     Active Substance: BEVACIZUMAB
     Indication: GLIOBLASTOMA
     Route: 065
  3. TEMOZOLOMIDE [Suspect]
     Active Substance: TEMOZOLOMIDE
     Indication: GLIOBLASTOMA
     Dosage: AFTER RADIOTHERAPY, 5 DAY PER 28 DAY CYCLE
     Route: 065
  4. TEMOZOLOMIDE [Suspect]
     Active Substance: TEMOZOLOMIDE
     Route: 065

REACTIONS (19)
  - Embolism venous [Unknown]
  - Thrombocytopenia [Unknown]
  - Rash [Unknown]
  - Myocardial infarction [Unknown]
  - Herpes oesophagitis [Unknown]
  - Neutropenia [Unknown]
  - Infection [Unknown]
  - Hepatic function abnormal [Unknown]
  - Pneumonia [Unknown]
  - Lymphopenia [Unknown]
  - Diarrhoea [Unknown]
  - Weight decreased [Unknown]
  - Fatigue [Unknown]
  - Pneumonitis [Unknown]
  - Aspergillus infection [Fatal]
  - Bronchial fistula [Unknown]
  - Wound complication [Unknown]
  - Hypertension [Unknown]
  - Cerebrovascular accident [Unknown]
